FAERS Safety Report 24692069 (Version 2)
Quarter: 2024Q4

REPORT INFORMATION
  Report Type: Report from Study
  Country: CA (occurrence: CA)
  Receive Date: 20241203
  Receipt Date: 20241220
  Transmission Date: 20250115
  Serious: Yes (Other)
  Sender: TAKEDA
  Company Number: CA-TAKEDA-2024TUS039621

PATIENT
  Age: 76 Year
  Sex: Male

DRUGS (6)
  1. VEDOLIZUMAB [Suspect]
     Active Substance: VEDOLIZUMAB
     Indication: Colitis ulcerative
     Dosage: 300 MILLIGRAM
  2. VEDOLIZUMAB [Suspect]
     Active Substance: VEDOLIZUMAB
     Dosage: 300 MILLIGRAM, Q4WEEKS
     Dates: start: 20241211
  3. EYLEA [Suspect]
     Active Substance: AFLIBERCEPT
     Indication: Product used for unknown indication
     Dosage: UNK UNK, Q7WEEKS
  4. Salofalk [Concomitant]
     Dosage: UNK
  5. MESALAMINE [Concomitant]
     Active Substance: MESALAMINE
     Dosage: UNK
  6. PREDNISONE [Concomitant]
     Active Substance: PREDNISONE
     Dosage: 40 MILLIGRAM

REACTIONS (14)
  - Rectal haemorrhage [Recovering/Resolving]
  - Visual impairment [Unknown]
  - Weight decreased [Unknown]
  - Eye discharge [Unknown]
  - Eye swelling [Unknown]
  - Off label use [Unknown]
  - Mucous stools [Recovering/Resolving]
  - Defaecation urgency [Unknown]
  - Diarrhoea [Recovering/Resolving]
  - Dyspnoea [Unknown]
  - Abdominal pain [Unknown]
  - Constipation [Unknown]
  - Abdominal distension [Unknown]
  - Fatigue [Unknown]

NARRATIVE: CASE EVENT DATE: 20241211
